FAERS Safety Report 12305901 (Version 4)
Quarter: 2016Q3

REPORT INFORMATION
  Report Type: Spontaneous
  Country: AR (occurrence: AR)
  Receive Date: 20160426
  Receipt Date: 20160729
  Transmission Date: 20161109
  Serious: Yes (Hospitalization, Other)
  Sender: FDA-Public Use
  Company Number: AR-ASTRAZENECA-2016SE41328

PATIENT
  Age: 57 Year
  Sex: Female

DRUGS (1)
  1. IRESSA [Suspect]
     Active Substance: GEFITINIB
     Indication: LUNG NEOPLASM MALIGNANT
     Route: 048
     Dates: start: 20160301

REACTIONS (8)
  - Neoplasm [Unknown]
  - Asthenia [Unknown]
  - Localised infection [Recovering/Resolving]
  - Arthralgia [Not Recovered/Not Resolved]
  - Joint injury [Unknown]
  - Depression [Not Recovered/Not Resolved]
  - Malaise [Unknown]
  - Abdominal neoplasm [Recovering/Resolving]

NARRATIVE: CASE EVENT DATE: 20160412
